FAERS Safety Report 19904449 (Version 1)
Quarter: 2021Q3

REPORT INFORMATION
  Report Type: Spontaneous
  Country: RU (occurrence: RU)
  Receive Date: 20210930
  Receipt Date: 20210930
  Transmission Date: 20211014
  Serious: Yes (Death, Hospitalization)
  Sender: FDA-Public Use
  Company Number: RU-R-PHARM US LLC-2021RPM00011

PATIENT
  Sex: Female

DRUGS (1)
  1. IXEMPRA [Suspect]
     Active Substance: IXABEPILONE

REACTIONS (1)
  - Blood count abnormal [Fatal]
